FAERS Safety Report 12826989 (Version 1)
Quarter: 2016Q4

REPORT INFORMATION
  Report Type: Spontaneous
  Country: GR (occurrence: GR)
  Receive Date: 20161006
  Receipt Date: 20161006
  Transmission Date: 20170207
  Serious: Yes (Other)
  Sender: FDA-Public Use
  Company Number: PHHY2016GR137047

PATIENT
  Sex: Female
  Weight: 1.66 kg

DRUGS (1)
  1. VALSARTAN. [Suspect]
     Active Substance: VALSARTAN
     Indication: FOETAL EXPOSURE DURING PREGNANCY
     Dosage: MATERNAL DOSE: 160 MG/DAY
     Route: 064

REACTIONS (6)
  - Premature baby [Unknown]
  - Low birth weight baby [Unknown]
  - Acute kidney injury [Recovered/Resolved]
  - Foetal growth restriction [Unknown]
  - Anuria [Recovered/Resolved]
  - Foetal exposure during pregnancy [Unknown]
